FAERS Safety Report 15889584 (Version 2)
Quarter: 2019Q1

REPORT INFORMATION
  Report Type: Spontaneous
  Country: US (occurrence: US)
  Receive Date: 20190130
  Receipt Date: 20190311
  Transmission Date: 20190417
  Serious: Yes (Other)
  Sender: FDA-Public Use
  Company Number: US-JNJFOC-20190130840

PATIENT
  Age: 70 Year
  Sex: Female
  Weight: 108.86 kg

DRUGS (5)
  1. CELECOXIB. [Concomitant]
     Active Substance: CELECOXIB
     Indication: ARTHRITIS
     Dosage: AS NEEDED
     Route: 065
  2. HYDROCHLOROTHIAZIDE. [Concomitant]
     Active Substance: HYDROCHLOROTHIAZIDE
     Indication: BLOOD PRESSURE ABNORMAL
     Route: 065
  3. ATORVASTATIN [Concomitant]
     Active Substance: ATORVASTATIN
     Indication: BLOOD CHOLESTEROL ABNORMAL
     Route: 065
  4. XARELTO [Suspect]
     Active Substance: RIVAROXABAN
     Indication: THROMBOSIS
     Route: 048
  5. OMEPRAZOLE. [Concomitant]
     Active Substance: OMEPRAZOLE
     Indication: GASTROOESOPHAGEAL REFLUX DISEASE
     Route: 065

REACTIONS (5)
  - Cough [Not Recovered/Not Resolved]
  - Product label issue [Unknown]
  - Migraine [Not Recovered/Not Resolved]
  - Decreased appetite [Not Recovered/Not Resolved]
  - Mental impairment [Not Recovered/Not Resolved]

NARRATIVE: CASE EVENT DATE: 201901
